FAERS Safety Report 8088856-5 (Version None)
Quarter: 2012Q1

REPORT INFORMATION
  Report Type: 
  Country: None (occurrence: None)
  Receive Date: 20120128
  Receipt Date: 20110405
  Transmission Date: 20120608
  Serious: No
  Sender: FDA-Public Use
  Company Number: US-ABBOTT-11P-163-0717277-00

PATIENT
  Sex: Female
  Weight: 61.29 kg

DRUGS (3)
  1. DICLOFENAC [Concomitant]
     Indication: PAIN
  2. PREDNISONE TAB [Concomitant]
     Indication: RHEUMATOID ARTHRITIS
  3. HUMIRA [Suspect]
     Indication: RHEUMATOID ARTHRITIS
     Dates: start: 20110404

REACTIONS (3)
  - PRURITUS [None]
  - OEDEMA PERIPHERAL [None]
  - ABASIA [None]
